FAERS Safety Report 4993956-X (Version None)
Quarter: 2006Q2

REPORT INFORMATION
  Report Type: 
  Country: None (occurrence: None)
  Receive Date: 20060505
  Receipt Date: 20060118
  Transmission Date: 20061013
  Serious: Yes (Hospitalization)
  Sender: FDA-Public Use
  Company Number: FR-GLAXOSMITHKLINE-B0407439A

PATIENT
  Age: 32 Month
  Sex: Male

DRUGS (13)
  1. LANVIS [Suspect]
     Indication: ACUTE LYMPHOCYTIC LEUKAEMIA
     Dosage: 60MGM2 PER DAY
     Route: 048
     Dates: start: 20051129, end: 20051206
  2. ARACYTINE [Suspect]
     Indication: ACUTE LYMPHOCYTIC LEUKAEMIA
     Dosage: 30MGM2 SEE DOSAGE TEXT
     Route: 042
     Dates: start: 20051130, end: 20051130
  3. KIDROLASE [Suspect]
     Indication: ACUTE LYMPHOCYTIC LEUKAEMIA
     Dosage: 6000Z SEE DOSAGE TEXT
     Route: 042
     Dates: start: 20050605, end: 20051114
  4. VEPESID [Suspect]
     Indication: ACUTE LYMPHOCYTIC LEUKAEMIA
     Dosage: 150MGM2 WEEKLY
     Route: 042
     Dates: start: 20051129, end: 20051129
  5. ELDISINE [Suspect]
     Indication: ACUTE LYMPHOCYTIC LEUKAEMIA
     Dosage: 3MGM2 WEEKLY
     Route: 042
     Dates: start: 20051027, end: 20051114
  6. DOXORUBICINE [Suspect]
     Indication: ACUTE LYMPHOCYTIC LEUKAEMIA
     Dosage: 25MGM2 WEEKLY
     Route: 042
     Dates: start: 20051027, end: 20051114
  7. DEXAMETHASONE [Suspect]
     Indication: ACUTE LYMPHOCYTIC LEUKAEMIA
     Dosage: 10MGM2 PER DAY
     Route: 065
     Dates: start: 20050605, end: 20051114
  8. BACTRIM [Suspect]
     Route: 065
  9. PURINETHOL [Suspect]
     Indication: ACUTE LYMPHOCYTIC LEUKAEMIA
     Dates: start: 20050609, end: 20060313
  10. METHOTREXATE [Suspect]
     Indication: ACUTE LYMPHOCYTIC LEUKAEMIA
     Route: 065
     Dates: start: 20050605, end: 20060313
  11. VINCRISTINE [Suspect]
     Indication: ACUTE LYMPHOCYTIC LEUKAEMIA
     Dates: start: 20050605, end: 20060313
  12. METHOTREXATE [Concomitant]
     Indication: ACUTE MYELOID LEUKAEMIA
     Route: 037
     Dates: start: 20051130, end: 20051130
  13. CORTICOID [Concomitant]
     Indication: ACUTE LYMPHOCYTIC LEUKAEMIA
     Dates: start: 20060126

REACTIONS (25)
  - ANAEMIA [None]
  - ASCITES [None]
  - BLOOD LACTATE DEHYDROGENASE INCREASED [None]
  - BONE MARROW FAILURE [None]
  - COAGULATION FACTOR VII LEVEL DECREASED [None]
  - COAGULOPATHY [None]
  - DIALYSIS [None]
  - DISSEMINATED INTRAVASCULAR COAGULATION [None]
  - FACTOR V DEFICIENCY [None]
  - HEPATIC FAILURE [None]
  - HEPATOCELLULAR DAMAGE [None]
  - HISTIOCYTOSIS HAEMATOPHAGIC [None]
  - HYPERTRIGLYCERIDAEMIA [None]
  - LABORATORY TEST ABNORMAL [None]
  - LEUKOPENIA [None]
  - NEUTROPENIA [None]
  - PANCYTOPENIA [None]
  - PLEURAL EFFUSION [None]
  - PROTHROMBIN LEVEL DECREASED [None]
  - PROTHROMBIN TIME RATIO DECREASED [None]
  - PYREXIA [None]
  - RENAL FAILURE ACUTE [None]
  - SERUM FERRITIN INCREASED [None]
  - THROMBOCYTOPENIA [None]
  - VENOOCCLUSIVE LIVER DISEASE [None]
